FAERS Safety Report 8161398-4 (Version None)
Quarter: 2012Q1

REPORT INFORMATION
  Report Type: 
  Country: None (occurrence: None)
  Receive Date: 20120224
  Receipt Date: 20120117
  Transmission Date: 20120608
  Serious: No
  Sender: FDA-Public Use
  Company Number: US-ALLERGAN-1200713US

PATIENT
  Sex: Female

DRUGS (2)
  1. LASTACAFT [Suspect]
  2. LASTACAFT [Suspect]
     Indication: CONJUNCTIVITIS VIRAL
     Dosage: 2 GTT, QD
     Route: 047
     Dates: start: 20120101, end: 20120117

REACTIONS (4)
  - CONJUNCTIVITIS VIRAL [None]
  - ERYTHEMA [None]
  - SWELLING FACE [None]
  - SCLERAL HYPERAEMIA [None]
